FAERS Safety Report 23616149 (Version 1)
Quarter: 2024Q1

REPORT INFORMATION
  Report Type: Spontaneous
  Country: SA (occurrence: SA)
  Receive Date: 20240311
  Receipt Date: 20240311
  Transmission Date: 20240410
  Serious: Yes (Hospitalization, Other)
  Sender: FDA-Public Use
  Company Number: SA-Accord-411621

PATIENT
  Age: 63 Year
  Sex: Male

DRUGS (3)
  1. AZACITIDINE [Suspect]
     Active Substance: AZACITIDINE
     Indication: Acute myeloid leukaemia
     Route: 042
  2. VENETOCLAX [Suspect]
     Active Substance: VENETOCLAX
     Indication: Acute myeloid leukaemia
  3. POSACONAZOLE [Suspect]
     Active Substance: POSACONAZOLE
     Indication: Inflammation

REACTIONS (7)
  - Pulmonary toxicity [Unknown]
  - Pyrexia [Unknown]
  - Tachypnoea [Unknown]
  - Neutropenia [Unknown]
  - Pneumonitis [Unknown]
  - Dyspnoea [Unknown]
  - Hypoxia [Unknown]
